FAERS Safety Report 6424280-6 (Version None)
Quarter: 2009Q4

REPORT INFORMATION
  Report Type: 
  Country: None (occurrence: None)
  Receive Date: 20091102
  Receipt Date: 20091020
  Transmission Date: 20100525
  Serious: Yes (Hospitalization)
  Sender: FDA-Public Use
  Company Number: IL-WATSON-2009-09013

PATIENT
  Age: 42 Year
  Sex: Female

DRUGS (2)
  1. METOCLOPRAMIDE HYDROCHLORIDE [Suspect]
     Indication: VOMITING
     Route: 042
  2. VENLAFAXINE [Suspect]
     Indication: ANXIETY

REACTIONS (2)
  - DRUG INTERACTION [None]
  - SEROTONIN SYNDROME [None]
